FAERS Safety Report 4404617-X (Version None)
Quarter: 2004Q3

REPORT INFORMATION
  Report Type: 
  Country: None (occurrence: None)
  Receive Date: 20040721
  Receipt Date: 20040721
  Transmission Date: 20050211
  Serious: No
  Sender: FDA-Public Use
  Company Number: None

PATIENT
  Age: 92 Year
  Sex: Female
  Weight: 46.4 kg

DRUGS (11)
  1. AVELOX [Suspect]
     Indication: CHRONIC OBSTRUCTIVE AIRWAYS DISEASE EXACERBATED
     Dosage: 400 MG QD INTRAVENOUS
     Route: 042
     Dates: start: 20040307, end: 20040309
  2. ATENOLOL [Concomitant]
  3. MAXZIDE [Concomitant]
  4. ASPIRIN [Concomitant]
  5. CALCIUM [Concomitant]
  6. VITAMIN D [Concomitant]
  7. DIOVAN [Concomitant]
  8. KCL TAB [Concomitant]
  9. MULTI-VITAMIN [Concomitant]
  10. GUAIFENESIN LA [Concomitant]
  11. PREDNISONE [Concomitant]

REACTIONS (1)
  - HALLUCINATION, VISUAL [None]
